FAERS Safety Report 22152716 (Version 1)
Quarter: 2023Q1

REPORT INFORMATION
  Report Type: Spontaneous
  Country: US (occurrence: US)
  Receive Date: 20230329
  Receipt Date: 20230329
  Transmission Date: 20230418
  Serious: Yes (Other)
  Sender: FDA-Public Use
  Company Number: US-002147023-NVSC2023US070530

PATIENT
  Sex: Female

DRUGS (3)
  1. CARBOPLATIN [Suspect]
     Active Substance: CARBOPLATIN
     Indication: Triple negative breast cancer
     Dosage: UNK, CYCLIC, 2 (AREA UNDER CURVE) DAYS 3, 10
     Route: 065
  2. VELIPARIB [Suspect]
     Active Substance: VELIPARIB
     Indication: Triple negative breast cancer
     Dosage: 150 MG, BID (DAYS 1-21)
     Route: 065
  3. PACLITAXEL [Suspect]
     Active Substance: PACLITAXEL
     Indication: Triple negative breast cancer
     Dosage: 80 MG/M2, CYCLIC (DAYS 3, 10)
     Route: 065

REACTIONS (4)
  - Metastases to central nervous system [Unknown]
  - Triple negative breast cancer [Unknown]
  - Malignant neoplasm progression [Unknown]
  - Product use in unapproved indication [Unknown]
